FAERS Safety Report 6089356-4 (Version None)
Quarter: 2009Q1

REPORT INFORMATION
  Report Type: 
  Country: None (occurrence: None)
  Receive Date: 20090224
  Receipt Date: 20090216
  Transmission Date: 20090719
  Serious: Yes (Life-Threatening, Hospitalization, Other)
  Sender: FDA-Public Use
  Company Number: AU-PURDUE-USA_2009_0037020

PATIENT
  Age: 62 Year
  Sex: Male

DRUGS (4)
  1. OXYCONTIN [Suspect]
     Indication: PAIN
     Dosage: 80 MG, DAILY
     Dates: start: 20081015, end: 20081117
  2. SORAFENIB [Suspect]
     Indication: HEPATIC NEOPLASM MALIGNANT
     Dosage: 200 MG, DAILY
     Dates: start: 20081103, end: 20081112
  3. LACTULOSE [Concomitant]
  4. THIAMINE HCL [Concomitant]

REACTIONS (3)
  - DELIRIUM [None]
  - MUSCULAR WEAKNESS [None]
  - RHABDOMYOLYSIS [None]
